FAERS Safety Report 4682750-5 (Version None)
Quarter: 2005Q2

REPORT INFORMATION
  Report Type: 
  Country: None (occurrence: None)
  Receive Date: 20050602
  Receipt Date: 20050418
  Transmission Date: 20051028
  Serious: No
  Sender: FDA-Public Use
  Company Number: USA050495934

PATIENT
  Age: 83 Year
  Sex: Female

DRUGS (4)
  1. CYMBALTA [Suspect]
     Dosage: 60 MG DAY
     Dates: start: 20041118
  2. COUMADIN [Concomitant]
  3. FOSAMAX (ALENDRONATE SODIU [Concomitant]
  4. COZAAR [Concomitant]

REACTIONS (5)
  - CARDIAC FLUTTER [None]
  - DECREASED APPETITE [None]
  - FEELING JITTERY [None]
  - PAIN [None]
  - SLEEP DISORDER [None]
